FAERS Safety Report 16745321 (Version 2)
Quarter: 2019Q3

REPORT INFORMATION
  Report Type: Spontaneous
  Country: SK (occurrence: SK)
  Receive Date: 20190827
  Receipt Date: 20190830
  Transmission Date: 20191005
  Serious: Yes (Death, Other)
  Sender: FDA-Public Use
  Company Number: SK-PFIZER INC-2019364506

PATIENT
  Age: 2 Year

DRUGS (13)
  1. DOXAZOSIN [Suspect]
     Active Substance: DOXAZOSIN MESYLATE
     Indication: HYPERTENSION
     Dosage: UNK
  2. CATAPRESAN [CLONIDINE] [Suspect]
     Active Substance: CLONIDINE
     Indication: HYPERTENSION
     Dosage: UNK
  3. EBRANTIL [URAPIDIL] [Suspect]
     Active Substance: URAPIDIL
     Indication: HYPERTENSION
     Dosage: UNK
  4. HYDROCHLOROTHIAZIDE. [Suspect]
     Active Substance: HYDROCHLOROTHIAZIDE
     Indication: HYPERTENSION
     Dosage: UNK
  5. METOPROLOL TARTRATE. [Suspect]
     Active Substance: METOPROLOL TARTRATE
     Indication: HYPERTENSION
     Dosage: UNK
  6. AMLODIPINE BESILATE [Suspect]
     Active Substance: AMLODIPINE BESYLATE
     Indication: HYPERTENSION
     Dosage: UNK
  7. LEVETIRACETAM. [Suspect]
     Active Substance: LEVETIRACETAM
     Indication: EPILEPSY
     Dosage: UNK
  8. PHENYTOIN. [Suspect]
     Active Substance: PHENYTOIN
     Indication: EPILEPSY
     Dosage: UNK
  9. FUROSEMIDE. [Suspect]
     Active Substance: FUROSEMIDE
     Indication: HYPERTENSION
     Dosage: UNK
  10. NITROPRUSSIDE SODIUM [Suspect]
     Active Substance: SODIUM NITROPRUSSIDE
     Indication: HYPERTENSION
     Dosage: UNK
  11. PRAZOSIN. [Suspect]
     Active Substance: PRAZOSIN
     Indication: HYPERTENSION
     Dosage: UNK
     Route: 065
  12. VALPROIC ACID. [Suspect]
     Active Substance: VALPROIC ACID
     Indication: EPILEPSY
     Dosage: UNK
  13. VASOCARDIN [Suspect]
     Active Substance: METOPROLOL
     Indication: HYPERTENSION
     Dosage: UNK

REACTIONS (6)
  - Multiple organ dysfunction syndrome [Fatal]
  - Hypertensive crisis [Fatal]
  - Hemiparesis [Fatal]
  - Loss of consciousness [Fatal]
  - Gastrointestinal haemorrhage [Fatal]
  - Muscular dystrophy [Fatal]
